FAERS Safety Report 10514611 (Version 3)
Quarter: 2015Q1

REPORT INFORMATION
  Report Type: Report from Study
  Country: US (occurrence: US)
  Receive Date: 20141013
  Receipt Date: 20150213
  Transmission Date: 20150720
  Serious: Yes (Hospitalization)
  Sender: FDA-Public Use
  Company Number: US-SA-2014SA135869

PATIENT
  Age: 55 Year
  Sex: Male
  Weight: 66.4 kg

DRUGS (7)
  1. PROCHLORPERAZINE. [Concomitant]
     Active Substance: PROCHLORPERAZINE
  2. AFLIBERCEPT [Suspect]
     Active Substance: AFLIBERCEPT
     Indication: RECTAL CANCER METASTATIC
     Route: 041
     Dates: start: 20140916, end: 20140916
  3. ASPIRIN. [Concomitant]
     Active Substance: ASPIRIN
  4. LEUCOVORIN [Suspect]
     Active Substance: LEUCOVORIN
     Indication: RECTAL CANCER METASTATIC
     Route: 041
     Dates: start: 20140916, end: 20140916
  5. LORATADINE. [Concomitant]
     Active Substance: LORATADINE
  6. 5 FU [Suspect]
     Active Substance: FLUOROURACIL
     Indication: RECTAL CANCER METASTATIC
     Route: 041
     Dates: start: 20140916, end: 20140916
  7. OXALIPLATIN. [Suspect]
     Active Substance: OXALIPLATIN
     Indication: RECTAL CANCER METASTATIC
     Route: 041
     Dates: start: 20140916, end: 20140916

REACTIONS (5)
  - Pyrexia [Unknown]
  - Systemic inflammatory response syndrome [Unknown]
  - Urinary tract infection [Unknown]
  - Fatigue [Unknown]
  - Dyspnoea [Unknown]

NARRATIVE: CASE EVENT DATE: 20140918
